FAERS Safety Report 8075820-5 (Version None)
Quarter: 2012Q1

REPORT INFORMATION
  Report Type: 
  Country: None (occurrence: None)
  Receive Date: 20120125
  Receipt Date: 20120125
  Transmission Date: 20120608
  Serious: Yes (Hospitalization)
  Sender: FDA-Public Use
  Company Number: None

PATIENT
  Age: 59 Year
  Sex: Male
  Weight: 97.2 kg

DRUGS (1)
  1. AMOXICILLIN [Suspect]
     Indication: URINARY TRACT INFECTION
     Dosage: 500 MG TID PO
     Route: 048
     Dates: start: 20111209, end: 20120113

REACTIONS (8)
  - RASH PRURITIC [None]
  - URTICARIA [None]
  - DIZZINESS [None]
  - PYREXIA [None]
  - DYSPHAGIA [None]
  - RASH GENERALISED [None]
  - FEELING OF BODY TEMPERATURE CHANGE [None]
  - RASH ERYTHEMATOUS [None]
